FAERS Safety Report 19355263 (Version 4)
Quarter: 2022Q1

REPORT INFORMATION
  Report Type: Report from Study
  Country: US (occurrence: US)
  Receive Date: 20210531
  Receipt Date: 20220121
  Transmission Date: 20220423
  Serious: No
  Sender: FDA-Public Use
  Company Number: NVSC2021US121907

PATIENT
  Sex: Male

DRUGS (1)
  1. ENTRESTO [Suspect]
     Active Substance: SACUBITRIL\VALSARTAN
     Indication: Product used for unknown indication
     Dosage: 50 MG, BID
     Route: 048
     Dates: start: 202105

REACTIONS (9)
  - Application site haemorrhage [Unknown]
  - Thyroid disorder [Unknown]
  - Pain in extremity [Unknown]
  - Somnolence [Unknown]
  - Paranoia [Unknown]
  - Scar [Unknown]
  - Blood cholesterol increased [Unknown]
  - Pruritus [Unknown]
  - Dizziness [Unknown]
